FAERS Safety Report 17779234 (Version 2)
Quarter: 2020Q2

REPORT INFORMATION
  Report Type: Spontaneous
  Country: US (occurrence: US)
  Receive Date: 20200514
  Receipt Date: 20200520
  Transmission Date: 20200714
  Serious: Yes (Other)
  Sender: FDA-Public Use
  Company Number: US-MTPC-MTDA2020-0052396

PATIENT
  Sex: Male

DRUGS (1)
  1. RADICAVA [Suspect]
     Active Substance: EDARAVONE
     Indication: AMYOTROPHIC LATERAL SCLEROSIS
     Dosage: UNK, QD 10 DAYS STRAIGHT THEN A FEW DAYS OFF
     Route: 042
     Dates: start: 201804

REACTIONS (6)
  - Choking [Unknown]
  - Tracheostomy [Unknown]
  - Disease progression [Unknown]
  - Therapeutic response unexpected [Unknown]
  - Asthenia [Unknown]
  - Dependence on respirator [Unknown]

NARRATIVE: CASE EVENT DATE: 201812
